FAERS Safety Report 5126931-5 (Version None)
Quarter: 2006Q4

REPORT INFORMATION
  Report Type: 
  Country: None (occurrence: None)
  Receive Date: 20061010
  Receipt Date: 20060927
  Transmission Date: 20070319
  Serious: Yes (Death)
  Sender: FDA-Public Use
  Company Number: 2006119905

PATIENT
  Age: 26 Year
  Sex: Female

DRUGS (3)
  1. CELEBREX [Suspect]
     Dosage: ORAL
     Route: 048
  2. BEXTRA [Suspect]
     Dosage: ORAL
     Route: 048
  3. VIOXX [Suspect]
     Dates: start: 20040112, end: 20041101

REACTIONS (3)
  - ARRHYTHMIA [None]
  - CACHEXIA [None]
  - RESPIRATORY FAILURE [None]
